FAERS Safety Report 5761267-0 (Version None)
Quarter: 2008Q2

REPORT INFORMATION
  Report Type: 
  Country: None (occurrence: None)
  Receive Date: 20080606
  Receipt Date: 20080528
  Transmission Date: 20081010
  Serious: Yes (Hospitalization, Other)
  Sender: FDA-Public Use
  Company Number: US-JNJFOC-20080600030

PATIENT
  Sex: Female

DRUGS (1)
  1. ULTRAM [Suspect]
     Indication: BACK DISORDER
     Route: 048

REACTIONS (7)
  - ANXIETY [None]
  - ARRHYTHMIA [None]
  - ARTERIAL RUPTURE [None]
  - CARDIAC ARREST [None]
  - FATIGUE [None]
  - GRAND MAL CONVULSION [None]
  - MEMORY IMPAIRMENT [None]
